FAERS Safety Report 4747831-6 (Version None)
Quarter: 2005Q3

REPORT INFORMATION
  Report Type: 
  Country: None (occurrence: None)
  Receive Date: 20050816
  Receipt Date: 20050804
  Transmission Date: 20060218
  Serious: Yes (Other)
  Sender: FDA-Public Use
  Company Number: 200511797BCC

PATIENT
  Age: 23 Year
  Sex: Female
  Weight: 81.6475 kg

DRUGS (1)
  1. ALEVE (CAPLET) [Suspect]
     Indication: MUSCLE SPASMS
     Dosage: ORAL
     Route: 048

REACTIONS (6)
  - CONDITION AGGRAVATED [None]
  - DRUG EXPOSURE DURING PREGNANCY [None]
  - OVERDOSE [None]
  - TREATMENT NONCOMPLIANCE [None]
  - UTERINE HAEMORRHAGE [None]
  - UTERINE SPASM [None]
